FAERS Safety Report 7149483-7 (Version None)
Quarter: 2010Q4

REPORT INFORMATION
  Report Type: 
  Country: None (occurrence: None)
  Receive Date: 20101209
  Receipt Date: 20101001
  Transmission Date: 20110411
  Serious: Yes (Disabling)
  Sender: FDA-Public Use
  Company Number: BR-GENZYME-CAMP-1001023

PATIENT
  Sex: Male
  Weight: 76 kg

DRUGS (7)
  1. ALEMTUZUMAB [Suspect]
     Indication: MULTIPLE SCLEROSIS
     Dosage: 12 MG, QDX5
     Route: 042
     Dates: start: 20090713, end: 20090717
  2. ALEMTUZUMAB [Suspect]
     Dosage: 12 MG, QDX3
     Route: 042
     Dates: start: 20100719, end: 20100721
  3. METHYLPREDNISOLONE [Concomitant]
     Indication: MULTIPLE SCLEROSIS
     Dosage: 1 G, QD
     Route: 042
     Dates: start: 20090713, end: 20090715
  4. METHYLPREDNISOLONE [Concomitant]
     Dosage: 1 G, QD
     Route: 042
     Dates: start: 20100719, end: 20100721
  5. MANTIDAM [Concomitant]
     Indication: EXTRAPYRAMIDAL DISORDER
     Dosage: 100 MG, TID
     Route: 048
     Dates: start: 20100416
  6. NORTRIPTYLINE HCL [Concomitant]
     Indication: PAIN
     Dosage: 50 MG, QD
     Dates: start: 20100101
  7. PRAMIPEXOLE [Concomitant]
     Indication: EXTRAPYRAMIDAL DISORDER
     Dosage: 0.125 MG, TID
     Route: 048
     Dates: start: 20100609

REACTIONS (1)
  - SINUSITIS [None]
